FAERS Safety Report 9897700 (Version 1)
Quarter: 2014Q1

REPORT INFORMATION
  Report Type: Spontaneous
  Country: FR (occurrence: FR)
  Receive Date: 20140214
  Receipt Date: 20140214
  Transmission Date: 20141002
  Serious: Yes (Hospitalization)
  Sender: FDA-Public Use
  Company Number: FR-MALLINCKRODT-T201401178

PATIENT
  Age: 61 Year
  Sex: Female

DRUGS (2)
  1. OPTIJECT 350 [Suspect]
     Indication: SCAN
     Dosage: 80 ML, UNK
     Route: 042
     Dates: start: 20131118, end: 20131118
  2. HUMIRA [Concomitant]
     Indication: PSORIASIS
     Dosage: 40 MG/15 DAYS
     Route: 065
     Dates: start: 2012

REACTIONS (2)
  - Psoriasis [Recovering/Resolving]
  - Condition aggravated [Not Recovered/Not Resolved]
